FAERS Safety Report 25636781 (Version 1)
Quarter: 2025Q3

REPORT INFORMATION
  Report Type: Spontaneous
  Country: JP (occurrence: JP)
  Receive Date: 20250804
  Receipt Date: 20250804
  Transmission Date: 20251021
  Serious: Yes (Other)
  Sender: AMGEN
  Company Number: JP-BEH-2025214697

PATIENT

DRUGS (2)
  1. TAVNEOS [Suspect]
     Active Substance: AVACOPAN
     Indication: Microscopic polyangiitis
     Route: 048
  2. TAVNEOS [Suspect]
     Active Substance: AVACOPAN
     Indication: Granulomatosis with polyangiitis

REACTIONS (9)
  - Cytopenia [Unknown]
  - Renal failure [Unknown]
  - Lung neoplasm malignant [Unknown]
  - Cardiac failure [Unknown]
  - Pneumonia aspiration [Unknown]
  - Malaise [Unknown]
  - Rash [Unknown]
  - Drug ineffective [Unknown]
  - Hepatic function abnormal [Unknown]
